FAERS Safety Report 24196132 (Version 1)
Quarter: 2024Q3

REPORT INFORMATION
  Report Type: Report from Study
  Country: DE (occurrence: DE)
  Receive Date: 20240809
  Receipt Date: 20240809
  Transmission Date: 20241017
  Serious: Yes (Life-Threatening, Other)
  Sender: TEVA
  Company Number: DE-ROCHE-313090

PATIENT
  Age: 86 Year
  Sex: Female
  Weight: 56 kg

DRUGS (135)
  1. ASPIRIN [Suspect]
     Active Substance: ASPIRIN
     Indication: Coagulopathy
     Route: 065
     Dates: start: 20000914, end: 20000917
  2. ASPIRIN [Suspect]
     Active Substance: ASPIRIN
     Indication: Coagulopathy
     Route: 048
     Dates: start: 20000828, end: 20000831
  3. ASPIRIN [Suspect]
     Active Substance: ASPIRIN
     Indication: Coagulopathy
     Route: 065
     Dates: start: 20000914, end: 20000917
  4. ASPIRIN [Suspect]
     Active Substance: ASPIRIN
     Indication: Coagulopathy
     Route: 065
     Dates: start: 20000914, end: 20000917
  5. ASPIRIN [Suspect]
     Active Substance: ASPIRIN
     Indication: Coagulopathy
     Route: 048
     Dates: start: 20000828, end: 20000831
  6. ASPIRIN [Suspect]
     Active Substance: ASPIRIN
     Indication: Coagulopathy
     Route: 048
     Dates: start: 20000828, end: 20000831
  7. ASPIRIN [Suspect]
     Active Substance: ASPIRIN
     Indication: Coagulopathy
     Dosage: UNK
     Route: 048
  8. FENTANYL [Suspect]
     Active Substance: FENTANYL\FENTANYL CITRATE
     Indication: Pain
     Dosage: 125 MICROGRAMS PER INHALATION
     Route: 062
  9. FENTANYL [Suspect]
     Active Substance: FENTANYL\FENTANYL CITRATE
     Indication: Pain
     Dosage: 150 MICROGRAMS PER INHALATION, 72 - EVERY HOUR; DUROGESIC DTRANS
     Route: 062
     Dates: start: 20000820, end: 20000916
  10. FENTANYL [Suspect]
     Active Substance: FENTANYL\FENTANYL CITRATE
     Indication: Pain
     Dosage: 1 DF
     Route: 062
     Dates: start: 20000820, end: 20000916
  11. FENTANYL [Suspect]
     Active Substance: FENTANYL\FENTANYL CITRATE
     Indication: Pain
     Dosage: 150 DOSAGE FORM, Q3D (1 DF)
     Route: 065
     Dates: start: 20000820, end: 20000916
  12. FENTANYL [Suspect]
     Active Substance: FENTANYL\FENTANYL CITRATE
     Indication: Pain
     Dosage: 50 MCG, MICROGRAMS PER INHALATION, 72 - EVERY HOUR
     Route: 062
  13. INSULIN NOS [Suspect]
     Active Substance: INSULIN NOS
     Indication: Diabetes mellitus
     Dosage: UNK, SUBCUTANEOUS EXCEPT ON 13 SEP 2000 WHEN GIVEN INTRAVENOU
     Route: 042
     Dates: start: 20000913, end: 20000913
  14. INSULIN NOS [Suspect]
     Active Substance: INSULIN NOS
     Indication: Diabetes mellitus
     Dosage: UNK
     Route: 065
     Dates: end: 20000917
  15. INSULIN NOS [Suspect]
     Active Substance: INSULIN NOS
     Indication: Diabetes mellitus
     Dosage: UNK, SUBCUTANEOUS EXCEPT ON 13 SEP 2000 WHEN GIVEN INTRAVENOU
     Route: 065
     Dates: start: 20000820, end: 20000917
  16. CALCIUM [Concomitant]
     Active Substance: CALCIUM
     Indication: Osteoporosis
     Route: 048
     Dates: start: 20000820, end: 20000917
  17. TORSEMIDE [Suspect]
     Active Substance: TORSEMIDE
     Indication: Cardiac failure
     Route: 048
     Dates: start: 20000820, end: 20000917
  18. TORSEMIDE [Suspect]
     Active Substance: TORSEMIDE
     Indication: Cardiac failure
     Dosage: UNK
     Route: 048
  19. GLYBURIDE [Concomitant]
     Active Substance: GLYBURIDE
     Indication: Diabetes mellitus
     Route: 065
     Dates: start: 20000820, end: 20000917
  20. COTRIM [Concomitant]
     Active Substance: SULFAMETHOXAZOLE\TRIMETHOPRIM
     Indication: Urinary tract infection
     Dosage: 1 DF, 1 DOSE DAILY (1 DF, 1 DOSE DAILY)IN THE INITIAL
     Route: 048
     Dates: start: 20000916, end: 20000917
  21. LORMETAZEPAM [Suspect]
     Active Substance: LORMETAZEPAM
     Indication: Sedative therapy
     Dosage: 2 DOSAGE FORM, 1 DOSE DAILY
     Route: 065
  22. LORMETAZEPAM [Suspect]
     Active Substance: LORMETAZEPAM
     Indication: Sedative therapy
     Dosage: SUSPENSION AEROSOL
     Route: 048
     Dates: start: 20000913, end: 20000913
  23. SULFAMETHOXAZOLE [Concomitant]
     Active Substance: SULFAMETHOXAZOLE
     Indication: Urinary tract infection
     Dosage: UNK
     Route: 065
     Dates: start: 20000916, end: 20000917
  24. ISOSORBIDE MONONITRATE [Suspect]
     Active Substance: ISOSORBIDE MONONITRATE
     Indication: Angina pectoris
     Dosage: 1 DOSAGE FORM, (DAILY DOSE), QD (MONO MACK DEPOT)
     Route: 048
     Dates: start: 20000820, end: 20000917
  25. NOREPINEPHRINE [Concomitant]
     Active Substance: NOREPINEPHRINE\NOREPINEPHRINE BITARTRATE
     Indication: Diabetes mellitus
     Route: 065
     Dates: start: 20000913, end: 20000913
  26. PLAVIX [Suspect]
     Active Substance: CLOPIDOGREL BISULFATE
     Indication: Thrombosis prophylaxis
     Route: 048
     Dates: start: 20000913, end: 20000917
  27. PLAVIX [Suspect]
     Active Substance: CLOPIDOGREL BISULFATE
     Indication: Thrombosis prophylaxis
     Dosage: 75 MG, 1 DOSE DAILY, CUMULATIVE DOSE -375MGCATAPRESAN
     Route: 048
     Dates: start: 20000913, end: 20000917
  28. PLAVIX [Suspect]
     Active Substance: CLOPIDOGREL BISULFATE
     Indication: Thrombosis prophylaxis
     Route: 065
  29. PREDNISONE [Suspect]
     Active Substance: PREDNISONE
     Indication: Pemphigoid
     Route: 048
  30. PREDNISONE [Suspect]
     Active Substance: PREDNISONE
     Indication: Pemphigoid
     Route: 048
  31. PREDNISONE [Suspect]
     Active Substance: PREDNISONE
     Indication: Pemphigoid
     Route: 048
  32. PREDNISONE [Suspect]
     Active Substance: PREDNISONE
     Indication: Pemphigoid
     Route: 048
  33. PREDNISONE [Suspect]
     Active Substance: PREDNISONE
     Indication: Pemphigoid
     Route: 048
     Dates: start: 20000820, end: 20000917
  34. PREDNISONE [Suspect]
     Active Substance: PREDNISONE
     Indication: Pemphigoid
     Route: 048
  35. OMEPRAZOLE [Concomitant]
     Active Substance: OMEPRAZOLE
     Indication: Prophylaxis against gastrointestinal ulcer
     Route: 048
     Dates: start: 20000820, end: 20000917
  36. DIAZEPAM [Suspect]
     Active Substance: DIAZEPAM
     Indication: Sedative therapy
     Dosage: UNK; DESITIN
     Route: 042
     Dates: start: 20000913, end: 20000913
  37. MOLSIDOMINE [Suspect]
     Active Substance: MOLSIDOMINE
     Indication: Coronary artery disease
     Route: 048
     Dates: start: 20000820, end: 20000914
  38. MOLSIDOMINE [Suspect]
     Active Substance: MOLSIDOMINE
     Indication: Coronary artery disease
     Route: 048
     Dates: start: 20000820, end: 20000914
  39. CLONIDINE [Suspect]
     Active Substance: CLONIDINE
     Indication: Coronary artery disease
     Dosage: UNK; CLONIDINE HYDROCHLORIDE
     Route: 065
     Dates: start: 20000913, end: 20000913
  40. CLONIDINE [Suspect]
     Active Substance: CLONIDINE
     Indication: Coronary artery disease
     Dosage: UNK
     Route: 065
  41. CALCIUM CHLORIDE [Concomitant]
     Active Substance: CALCIUM CHLORIDE
     Indication: Fluid retention
     Dosage: UNK
     Route: 065
  42. CALCIUM CHLORIDE [Concomitant]
     Active Substance: CALCIUM CHLORIDE
     Indication: Fluid retention
     Dosage: UNK
     Route: 048
     Dates: start: 20000820, end: 20000917
  43. XYLOCAINE [Suspect]
     Active Substance: LIDOCAINE HYDROCHLORIDE\LIDOCAINE HYDROCHLORIDE ANHYDROUS
     Indication: Local anaesthesia
     Dosage: UNK
     Route: 058
     Dates: start: 20000913, end: 20000913
  44. XYLOCAINE [Suspect]
     Active Substance: LIDOCAINE HYDROCHLORIDE\LIDOCAINE HYDROCHLORIDE ANHYDROUS
     Indication: Local anaesthesia
     Dosage: UNK
     Route: 058
  45. XYLOCAINE [Suspect]
     Active Substance: LIDOCAINE HYDROCHLORIDE\LIDOCAINE HYDROCHLORIDE ANHYDROUS
     Indication: Local anaesthesia
     Dosage: UNK
     Route: 058
     Dates: start: 20000913, end: 20000913
  46. CLEMASTINE FUMARATE [Suspect]
     Active Substance: CLEMASTINE FUMARATE
     Indication: Pemphigoid
     Route: 048
     Dates: start: 20000820, end: 20000828
  47. CLEMASTINE FUMARATE [Suspect]
     Active Substance: CLEMASTINE FUMARATE
     Indication: Pemphigoid
     Route: 048
     Dates: start: 20000820, end: 20000828
  48. POTASSIUM CHLORIDE [Concomitant]
     Active Substance: POTASSIUM CHLORIDE
     Indication: Electrolyte depletion
     Dosage: UNK
     Route: 048
     Dates: start: 20000820, end: 20000917
  49. POTASSIUM CHLORIDE [Concomitant]
     Active Substance: POTASSIUM CHLORIDE
     Indication: Electrolyte depletion
     Route: 042
     Dates: start: 20000913, end: 20000914
  50. POTASSIUM CHLORIDE [Concomitant]
     Active Substance: POTASSIUM CHLORIDE
     Indication: Electrolyte depletion
     Dosage: UNK
     Route: 065
  51. VIOXX [Suspect]
     Active Substance: ROFECOXIB
     Indication: Rheumatic disorder
     Dosage: UNK
     Route: 048
  52. VIOXX [Suspect]
     Active Substance: ROFECOXIB
     Indication: Rheumatic disorder
     Route: 048
     Dates: start: 20000907, end: 20000917
  53. SODIUM CHLORIDE [Concomitant]
     Active Substance: SODIUM CHLORIDE
     Indication: Electrolyte depletion
     Dosage: UNK
     Route: 042
     Dates: start: 20000913, end: 20000914
  54. SODIUM CHLORIDE [Concomitant]
     Active Substance: SODIUM CHLORIDE
     Indication: Electrolyte depletion
     Dosage: UNK
     Route: 042
     Dates: start: 20000913, end: 20000914
  55. FENTANYL [Concomitant]
     Active Substance: FENTANYL\FENTANYL CITRATE
     Indication: Pain
     Route: 062
     Dates: start: 20000820, end: 20000916
  56. FENTANYL [Concomitant]
     Active Substance: FENTANYL\FENTANYL CITRATE
     Indication: Pain
     Route: 062
     Dates: start: 20000820, end: 20000917
  57. OMEPRAZOLE [Suspect]
     Active Substance: OMEPRAZOLE
     Indication: Prophylaxis against gastrointestinal ulcer
     Route: 048
     Dates: start: 20000820, end: 20000917
  58. NORTRIPTYLINE [Suspect]
     Active Substance: NORTRIPTYLINE
     Indication: Coronary artery disease
     Dosage: UNK
     Route: 042
     Dates: start: 20000913, end: 20000913
  59. PREDNISOLONE [Suspect]
     Active Substance: PREDNISOLONE
     Indication: Dermatitis bullous
     Dosage: UNK
     Route: 048
     Dates: start: 20000820, end: 20000917
  60. PREDNISOLONE [Suspect]
     Active Substance: PREDNISOLONE
     Indication: Dermatitis bullous
     Dosage: UNK
     Route: 065
     Dates: start: 20000820, end: 20000917
  61. PREDNISOLONE [Suspect]
     Active Substance: PREDNISOLONE
     Indication: Dermatitis bullous
     Route: 048
  62. PREDNISOLONE [Suspect]
     Active Substance: PREDNISOLONE
     Indication: Dermatitis bullous
     Route: 065
  63. PREDNISOLONE [Suspect]
     Active Substance: PREDNISOLONE
     Indication: Dermatitis bullous
     Route: 048
  64. PREDNISOLONE [Suspect]
     Active Substance: PREDNISOLONE
     Indication: Dermatitis bullous
     Route: 048
     Dates: start: 20000820, end: 20000917
  65. PREDNISOLONE [Suspect]
     Active Substance: PREDNISOLONE
     Indication: Dermatitis bullous
     Route: 048
     Dates: start: 20000820, end: 20000917
  66. PREDNISOLONE [Suspect]
     Active Substance: PREDNISOLONE
     Indication: Dermatitis bullous
     Dosage: UNK
     Route: 065
     Dates: start: 20000820, end: 20000917
  67. PREDNISOLONE [Suspect]
     Active Substance: PREDNISOLONE
     Indication: Dermatitis bullous
     Route: 048
     Dates: start: 20000820, end: 20000917
  68. PREDNISOLONE [Suspect]
     Active Substance: PREDNISOLONE
     Indication: Dermatitis bullous
     Route: 065
     Dates: start: 20000820, end: 20000917
  69. PREDNISOLONE [Suspect]
     Active Substance: PREDNISOLONE
     Indication: Dermatitis bullous
     Route: 048
  70. PREDNISOLONE [Suspect]
     Active Substance: PREDNISOLONE
     Indication: Dermatitis bullous
     Route: 048
  71. PREDNISOLONE [Suspect]
     Active Substance: PREDNISOLONE
     Indication: Dermatitis bullous
     Route: 048
  72. PREDNISOLONE [Suspect]
     Active Substance: PREDNISOLONE
     Indication: Dermatitis bullous
     Route: 048
  73. PREDNISOLONE [Suspect]
     Active Substance: PREDNISOLONE
     Indication: Dermatitis bullous
     Route: 065
     Dates: start: 20000820, end: 20000917
  74. PREDNISOLONE [Suspect]
     Active Substance: PREDNISOLONE
     Indication: Dermatitis bullous
     Route: 048
  75. PREDNISOLONE [Suspect]
     Active Substance: PREDNISOLONE
     Indication: Dermatitis bullous
     Dosage: UNK
     Route: 065
  76. PREDNISOLONE [Suspect]
     Active Substance: PREDNISOLONE
     Indication: Dermatitis bullous
     Route: 048
  77. NOREPINEPHRINE [Suspect]
     Active Substance: NOREPINEPHRINE\NOREPINEPHRINE BITARTRATE
     Indication: Coronary artery disease
     Dosage: UNK
     Route: 042
     Dates: start: 20000913, end: 20000913
  78. NOREPINEPHRINE [Suspect]
     Active Substance: NOREPINEPHRINE\NOREPINEPHRINE BITARTRATE
     Indication: Coronary artery disease
     Dosage: UNK
     Route: 065
  79. NOREPINEPHRINE [Suspect]
     Active Substance: NOREPINEPHRINE\NOREPINEPHRINE BITARTRATE
     Indication: Coronary artery disease
     Dosage: UNK
     Route: 042
     Dates: start: 20000913, end: 20000913
  80. CALCIUM GLUCONATE [Concomitant]
     Active Substance: CALCIUM GLUCONATE
     Indication: Osteoporosis
     Route: 048
     Dates: start: 20000820, end: 20000917
  81. NOVALGIN (METAMIZOLE SODIUM) [Suspect]
     Active Substance: METAMIZOLE SODIUM
     Indication: Thrombosis prophylaxis
     Dosage: UNK
     Route: 048
  82. NOVALGIN (METAMIZOLE SODIUM) [Suspect]
     Active Substance: METAMIZOLE SODIUM
     Indication: Thrombosis prophylaxis
     Dosage: 20 GTT, 1 DOSE DAILY (1 DOSE DAILY)PREVIOUSLY THE INGREDIENT CODED AS METAMIZOLE SODIUM
     Route: 048
     Dates: start: 20000820, end: 20000917
  83. DEXTROSE [Concomitant]
     Active Substance: DEXTROSE\DEXTROSE MONOHYDRATE
     Indication: Cardiovascular disorder
     Dosage: UNK
     Route: 042
     Dates: start: 20000913, end: 20000913
  84. DEXTROSE [Concomitant]
     Active Substance: DEXTROSE\DEXTROSE MONOHYDRATE
     Indication: Cardiovascular disorder
     Route: 065
  85. ESTRIOL [Suspect]
     Active Substance: ESTRIOL
     Indication: Vulvovaginal disorder
     Dosage: 1 DF, 1 DOSE DAILY (PREVIOUSLY INGREDIENT THAT WAS CODED IS ESTRIOL SUCCINATE)
     Route: 067
     Dates: start: 20000820, end: 20000906
  86. FRAGMIN [Suspect]
     Active Substance: DALTEPARIN SODIUM
     Indication: Coagulopathy
     Dosage: UNK
     Route: 058
     Dates: start: 20000820, end: 20000917
  87. FRAGMIN [Suspect]
     Active Substance: DALTEPARIN SODIUM
     Indication: Coagulopathy
     Dosage: UNK
     Route: 065
  88. FRAGMIN [Suspect]
     Active Substance: DALTEPARIN SODIUM
     Indication: Coagulopathy
     Dosage: UNK
     Route: 058
     Dates: start: 20000820, end: 20000917
  89. FRAGMIN [Suspect]
     Active Substance: DALTEPARIN SODIUM
     Indication: Coagulopathy
     Route: 065
  90. FRAGMIN [Suspect]
     Active Substance: DALTEPARIN SODIUM
     Indication: Coagulopathy
     Dosage: UNK
     Route: 058
     Dates: start: 20000820, end: 20000917
  91. FRAGMIN [Suspect]
     Active Substance: DALTEPARIN SODIUM
     Indication: Coagulopathy
     Dosage: UNK
     Route: 065
  92. FRAGMIN [Suspect]
     Active Substance: DALTEPARIN SODIUM
     Indication: Coagulopathy
     Route: 065
     Dates: start: 20200820, end: 20200917
  93. FRAGMIN [Suspect]
     Active Substance: DALTEPARIN SODIUM
     Indication: Coagulopathy
     Dosage: UNK
     Route: 065
     Dates: start: 20000820, end: 20000917
  94. FRAGMIN [Suspect]
     Active Substance: DALTEPARIN SODIUM
     Indication: Coagulopathy
     Route: 065
     Dates: start: 20000820, end: 20000917
  95. FRAGMIN [Suspect]
     Active Substance: DALTEPARIN SODIUM
     Indication: Coagulopathy
     Route: 065
     Dates: start: 20000820, end: 20000917
  96. GLYBURIDE [Suspect]
     Active Substance: GLYBURIDE
     Indication: Diabetes mellitus
     Route: 048
     Dates: start: 20000820, end: 20000917
  97. GLYBURIDE [Suspect]
     Active Substance: GLYBURIDE
     Indication: Diabetes mellitus
     Dosage: UNK
     Route: 048
     Dates: start: 20000820, end: 20000917
  98. GLYBURIDE [Suspect]
     Active Substance: GLYBURIDE
     Indication: Diabetes mellitus
     Route: 048
     Dates: start: 20000820, end: 20000917
  99. GLYBURIDE [Suspect]
     Active Substance: GLYBURIDE
     Indication: Diabetes mellitus
     Dosage: UNK
     Route: 048
     Dates: start: 20000820, end: 20000917
  100. NOREPINEPHRINE [Suspect]
     Active Substance: NOREPINEPHRINE\NOREPINEPHRINE BITARTRATE
     Indication: Coronary artery disease
     Dosage: UNK
     Route: 042
     Dates: start: 20000913, end: 20000913
  101. CLONIDINE [Suspect]
     Active Substance: CLONIDINE
     Indication: Hypertension
     Route: 048
     Dates: start: 20000820, end: 20000914
  102. CLONIDINE [Suspect]
     Active Substance: CLONIDINE
     Indication: Hypertension
     Dosage: UNK (208 MILLIGRAMS)
     Route: 042
  103. CLONIDINE [Suspect]
     Active Substance: CLONIDINE
     Indication: Hypertension
     Dosage: UNK
     Route: 042
     Dates: start: 20000913, end: 20000913
  104. NOREPINEPHRINE\NOREPINEPHRINE BITARTRATE [Suspect]
     Active Substance: NOREPINEPHRINE\NOREPINEPHRINE BITARTRATE
     Indication: Coronary artery disease
     Dosage: UNK
     Route: 065
  105. NOREPINEPHRINE\NOREPINEPHRINE BITARTRATE [Suspect]
     Active Substance: NOREPINEPHRINE\NOREPINEPHRINE BITARTRATE
     Indication: Coronary artery disease
     Route: 042
     Dates: start: 20000913, end: 20000913
  106. NOREPINEPHRINE\NOREPINEPHRINE BITARTRATE [Suspect]
     Active Substance: NOREPINEPHRINE\NOREPINEPHRINE BITARTRATE
     Indication: Coronary artery disease
     Dosage: UNK UNK, QD
     Route: 042
     Dates: start: 20000913, end: 20000913
  107. NOREPINEPHRINE\NOREPINEPHRINE BITARTRATE [Suspect]
     Active Substance: NOREPINEPHRINE\NOREPINEPHRINE BITARTRATE
     Indication: Coronary artery disease
     Route: 042
     Dates: start: 20000913, end: 20000913
  108. TORSEMIDE [Suspect]
     Active Substance: TORSEMIDE
     Indication: Cardiac failure
     Route: 048
     Dates: start: 20000820, end: 20000917
  109. MOLSIDOMINE [Concomitant]
     Active Substance: MOLSIDOMINE
     Indication: Coronary artery disease
     Dosage: 1 DOSAGE FORM, QD (CORVATON RETARD)
     Route: 048
     Dates: start: 20000820, end: 20000914
  110. MOLSIDOMINE [Concomitant]
     Active Substance: MOLSIDOMINE
     Indication: Coronary artery disease
     Dosage: 8 MG, QD, 1 DOSE DAILY (CORVATON RETARD)
     Route: 048
  111. MOLSIDOMINE [Concomitant]
     Active Substance: MOLSIDOMINE
     Indication: Coronary artery disease
     Dosage: 8 MG, QD, 1 DOSE DAILY (CORVATON RETARD)
     Route: 048
     Dates: start: 20000820, end: 20000914
  112. PREDNISOLONE [Concomitant]
     Active Substance: PREDNISOLONE
     Indication: Dermatitis bullous
     Dosage: UNK
     Route: 048
     Dates: start: 20000820, end: 20000917
  113. PREDNISOLONE [Concomitant]
     Active Substance: PREDNISOLONE
     Indication: Dermatitis bullous
     Route: 048
  114. PREDNISOLONE [Concomitant]
     Active Substance: PREDNISOLONE
     Indication: Dermatitis bullous
     Route: 048
  115. PREDNISOLONE [Concomitant]
     Active Substance: PREDNISOLONE
     Indication: Dermatitis bullous
     Route: 048
     Dates: start: 20000820, end: 20000917
  116. PREDNISOLONE [Concomitant]
     Active Substance: PREDNISOLONE
     Indication: Dermatitis bullous
     Route: 048
  117. PREDNISOLONE [Concomitant]
     Active Substance: PREDNISOLONE
     Indication: Dermatitis bullous
     Route: 048
  118. ASPIRIN [Suspect]
     Active Substance: ASPIRIN
     Indication: Coagulopathy
     Route: 048
     Dates: start: 20000828, end: 20000831
  119. ASPIRIN [Suspect]
     Active Substance: ASPIRIN
     Indication: Coagulopathy
     Route: 048
     Dates: start: 20000914, end: 20000917
  120. OMEPRAZOLE [Suspect]
     Active Substance: OMEPRAZOLE
     Indication: Prophylaxis against gastrointestinal ulcer
     Dosage: OMEPRAZOLE MAGNESIUM
     Route: 048
     Dates: start: 20000820, end: 20000917
  121. OMEPRAZOLE MAGNESIUM [Concomitant]
     Active Substance: OMEPRAZOLE MAGNESIUM
     Indication: Prophylaxis against gastrointestinal ulcer
     Route: 048
     Dates: start: 20000820, end: 20000917
  122. ASPIRIN [Suspect]
     Active Substance: ASPIRIN
     Indication: Coagulopathy
     Dosage: UNK
     Route: 065
  123. ASPIRIN [Suspect]
     Active Substance: ASPIRIN
     Indication: Coagulopathy
     Route: 048
     Dates: start: 20000828, end: 20000831
  124. ASPIRIN [Suspect]
     Active Substance: ASPIRIN
     Indication: Coagulopathy
     Route: 048
     Dates: start: 20000914, end: 20000917
  125. LIDOCAINE [Suspect]
     Active Substance: LIDOCAINE
     Indication: Local anaesthesia
     Dosage: UNK, QID ; LIDOCAINE HYDROCHLORIDE
     Route: 058
     Dates: start: 20000913, end: 20000913
  126. RINGERS SOLUTION [Concomitant]
     Active Substance: CALCIUM CHLORIDE\POTASSIUM CHLORIDE\SODIUM CHLORIDE
     Indication: Fluid retention
     Dosage: UNK (BAXTER HEALTHCARE RINGERS)
     Route: 042
     Dates: start: 20000913, end: 20000914
  127. LORMETAZEPAM [Suspect]
     Active Substance: LORMETAZEPAM
     Indication: Sedation
     Route: 048
     Dates: start: 20000913, end: 20000913
  128. OMEPRAZOLE MAGNESIUM [Concomitant]
     Active Substance: OMEPRAZOLE MAGNESIUM
     Indication: Prophylaxis against gastrointestinal ulcer
     Route: 048
     Dates: start: 20000820, end: 20000917
  129. CALCIUM CHLORIDE [Concomitant]
     Active Substance: CALCIUM CHLORIDE
     Indication: Electrolyte depletion
     Dosage: UNK
     Route: 065
     Dates: start: 20230913, end: 20230914
  130. CALCIUM CHLORIDE [Concomitant]
     Active Substance: CALCIUM CHLORIDE
     Indication: Electrolyte depletion
     Dosage: UNK
     Route: 065
  131. OMEPRAZOLE [Concomitant]
     Active Substance: OMEPRAZOLE
     Indication: Prophylaxis against gastrointestinal ulcer
     Route: 048
     Dates: start: 20000820, end: 20000917
  132. PREDNISONE [Concomitant]
     Active Substance: PREDNISONE
     Indication: Product used for unknown indication
     Dosage: UNK
     Route: 065
  133. DALTEPARIN SODIUM [Concomitant]
     Active Substance: DALTEPARIN SODIUM
     Indication: Coagulopathy
     Dosage: UNK
     Route: 058
     Dates: start: 20000820, end: 20000917
  134. MOLSIDOMINE [Concomitant]
     Active Substance: MOLSIDOMINE
     Indication: Coronary artery disease
     Route: 048
     Dates: start: 20000820, end: 20000914
  135. CALCIUM [Concomitant]
     Active Substance: CALCIUM
     Indication: Osteoporosis
     Dosage: CALCIUM SUPPLEMENTS
     Route: 048
     Dates: start: 20000820, end: 20000917

REACTIONS (7)
  - Toxic epidermal necrolysis [Recovered/Resolved]
  - Mouth ulceration [Recovered/Resolved]
  - Blister [Recovered/Resolved]
  - Conjunctivitis [Recovered/Resolved]
  - Erythema [Recovered/Resolved]
  - Genital erosion [Recovered/Resolved]
  - Mucosal erosion [Recovered/Resolved]

NARRATIVE: CASE EVENT DATE: 20000916
